FAERS Safety Report 15015224 (Version 1)
Quarter: 2018Q2

REPORT INFORMATION
  Report Type: Spontaneous
  Country: DK (occurrence: DK)
  Receive Date: 20180615
  Receipt Date: 20180615
  Transmission Date: 20180711
  Serious: Yes (Other)
  Sender: FDA-Public Use
  Company Number: DK-AUROBINDO-AUR-APL-2018-030940

PATIENT
  Age: 24 Year
  Sex: Male

DRUGS (1)
  1. TRAMADOL. [Suspect]
     Active Substance: TRAMADOL
     Indication: PRODUCT USED FOR UNKNOWN INDICATION
     Dosage: 300 MICROGRAM, DAILY
     Route: 065

REACTIONS (14)
  - Speech disorder [Unknown]
  - Fall [Unknown]
  - Insomnia [Unknown]
  - Decreased appetite [Unknown]
  - Suicidal behaviour [Unknown]
  - Pain in extremity [Unknown]
  - Abdominal pain upper [Unknown]
  - Tremor [Unknown]
  - Confusional state [Unknown]
  - Dyspnoea exertional [Unknown]
  - Paraesthesia [Unknown]
  - Heart rate increased [Unknown]
  - Yellow skin [Unknown]
  - Oligodipsia [Unknown]
